FAERS Safety Report 21837828 (Version 4)
Quarter: 2023Q4

REPORT INFORMATION
  Report Type: Spontaneous
  Country: US (occurrence: US)
  Receive Date: 20230109
  Receipt Date: 20231020
  Transmission Date: 20240110
  Serious: Yes (Other)
  Sender: FDA-Public Use
  Company Number: US-PFIZER INC-2019194792

PATIENT
  Age: 71 Year
  Sex: Female
  Weight: 47.63 kg

DRUGS (2)
  1. PREMARIN [Suspect]
     Active Substance: ESTROGENS, CONJUGATED
     Indication: Hot flush
     Dosage: 1.25 MG, 1X/DAY
     Route: 048
     Dates: start: 1992
  2. PREMARIN [Suspect]
     Active Substance: ESTROGENS, CONJUGATED
     Indication: Insomnia
     Dosage: 1.25 MG, 1X/DAY
     Route: 048

REACTIONS (1)
  - Pancreatic cyst [Recovering/Resolving]
